FAERS Safety Report 8475438-6 (Version None)
Quarter: 2012Q2

REPORT INFORMATION
  Report Type: 
  Country: None (occurrence: None)
  Receive Date: 20120628
  Receipt Date: 20120625
  Transmission Date: 20120825
  Serious: Yes (Death, Hospitalization, Other)
  Sender: FDA-Public Use
  Company Number: GB-ROCHE-1081435

PATIENT
  Age: 64 Year
  Sex: Male

DRUGS (15)
  1. ASPIRIN [Concomitant]
  2. NICORANDIL [Concomitant]
  3. VALSARTAN [Concomitant]
  4. TEMAZEPAM [Concomitant]
  5. SIMVASTATIN [Concomitant]
  6. DIAZEPAM [Concomitant]
  7. METHOTREXATE [Concomitant]
     Indication: RHEUMATOID ARTHRITIS
     Route: 048
  8. OMEPRAZOLE [Concomitant]
     Route: 048
  9. MONTELUKAST [Concomitant]
  10. ACTEMRA [Suspect]
     Indication: RHEUMATOID ARTHRITIS
     Route: 042
     Dates: start: 20111111, end: 20120217
  11. ISOSORBIDE MONONITRATE [Concomitant]
     Route: 048
  12. ACETAMINOPHEN AND CODEINE PHOSPHATE [Concomitant]
  13. FOLIC ACID [Concomitant]
  14. NAPROXEN [Concomitant]
     Route: 048
  15. ZEMTARD [Concomitant]

REACTIONS (3)
  - DEATH [None]
  - CHOLANGITIS [None]
  - SEPSIS [None]
